FAERS Safety Report 23078675 (Version 3)
Quarter: 2024Q4

REPORT INFORMATION
  Report Type: Report from Study
  Country: JP (occurrence: JP)
  Receive Date: 20231018
  Receipt Date: 20241129
  Transmission Date: 20250114
  Serious: No
  Sender: ALEXION PHARMACEUTICALS
  Company Number: 2023A226588

PATIENT
  Age: 74 Year
  Weight: 66 kg

DRUGS (12)
  1. CILGAVIMAB\TIXAGEVIMAB [Suspect]
     Active Substance: CILGAVIMAB\TIXAGEVIMAB
     Indication: COVID-19 prophylaxis
     Dosage: 300 MILLIGRAM, UNK
  2. LANSOPRAZOLE [Concomitant]
     Active Substance: LANSOPRAZOLE
     Indication: Lymphoma
     Dosage: DOSE UNKNOWN
  3. LANSOPRAZOLE [Concomitant]
     Active Substance: LANSOPRAZOLE
     Indication: Lymphoma
     Dosage: DOSE UNKNOWN
  4. SULFAMETHOXAZOLE\TRIMETHOPRIM [Concomitant]
     Active Substance: SULFAMETHOXAZOLE\TRIMETHOPRIM
     Indication: Prophylaxis
     Dosage: DOSE UNKNOWN
  5. SULFAMETHOXAZOLE\TRIMETHOPRIM [Concomitant]
     Active Substance: SULFAMETHOXAZOLE\TRIMETHOPRIM
     Dosage: DOSE UNKNOWN
  6. URSODIOL [Concomitant]
     Active Substance: URSODIOL
     Indication: Lymphoma
     Dosage: DOSE UNKNOWN
  7. URSODIOL [Concomitant]
     Active Substance: URSODIOL
     Indication: Lymphoma
     Dosage: DOSE UNKNOWN
  8. MAGNESIUM OXIDE [Concomitant]
     Active Substance: MAGNESIUM OXIDE
     Indication: Prophylaxis
     Dosage: DOSE UNKNOWN
  9. LEMBOREXANT [Concomitant]
     Active Substance: LEMBOREXANT
     Indication: Lymphoma
     Dosage: DOSE UNKNOWN
  10. MAGNESIUM OXIDE [Concomitant]
     Active Substance: MAGNESIUM OXIDE
     Indication: Prophylaxis
     Dosage: DOSE UNKNOWN
  11. DAYVIGO [Concomitant]
     Active Substance: LEMBOREXANT
     Indication: Lymphoma
     Dosage: DOSE UNKNOWN
  12. PROGRAF [Concomitant]
     Active Substance: TACROLIMUS
     Indication: Chronic graft versus host disease
     Dosage: DOSE UNKNOWN

REACTIONS (1)
  - No adverse event [Unknown]
